FAERS Safety Report 5649948-0 (Version None)
Quarter: 2008Q1

REPORT INFORMATION
  Report Type: 
  Country: None (occurrence: None)
  Receive Date: 20080304
  Receipt Date: 20080225
  Transmission Date: 20080703
  Serious: Yes (Other)
  Sender: FDA-Public Use
  Company Number: NL-MERCK-0611NLD00026

PATIENT
  Age: 28 Year
  Sex: Female

DRUGS (4)
  1. HYZAAR [Suspect]
     Route: 048
     Dates: start: 20000101
  2. HYZAAR [Suspect]
     Route: 048
     Dates: end: 20020101
  3. HYZAAR [Suspect]
     Route: 048
     Dates: end: 20040101
  4. HYZAAR [Suspect]
     Route: 048
     Dates: end: 20060101

REACTIONS (2)
  - ABORTION SPONTANEOUS [None]
  - DRUG EXPOSURE DURING PREGNANCY [None]
